FAERS Safety Report 8603938 (Version 4)
Quarter: 2014Q1

REPORT INFORMATION
  Report Type: Spontaneous
  Country: US (occurrence: US)
  Receive Date: 20120608
  Receipt Date: 20140124
  Transmission Date: 20141002
  Serious: Yes (Hospitalization, Other)
  Sender: FDA-Public Use
  Company Number: US-ASTRAZENECA-2012SE34925

PATIENT
  Age: 46 Year
  Sex: Female

DRUGS (23)
  1. NEXIUM [Suspect]
     Indication: GASTROOESOPHAGEAL REFLUX DISEASE
     Route: 048
     Dates: start: 20070811, end: 2011
  2. NEXIUM [Suspect]
     Indication: CHEST PAIN
     Route: 048
     Dates: start: 20070811, end: 2011
  3. NEXIUM [Suspect]
     Indication: DYSPEPSIA
     Route: 048
     Dates: start: 20070811, end: 2011
  4. NEXIUM [Suspect]
     Indication: GASTROOESOPHAGEAL REFLUX DISEASE
     Dosage: SOMETIME TWO PER DAY
     Route: 048
     Dates: start: 20070811, end: 2011
  5. NEXIUM [Suspect]
     Indication: CHEST PAIN
     Dosage: SOMETIME TWO PER DAY
     Route: 048
     Dates: start: 20070811, end: 2011
  6. NEXIUM [Suspect]
     Indication: DYSPEPSIA
     Dosage: SOMETIME TWO PER DAY
     Route: 048
     Dates: start: 20070811, end: 2011
  7. NEXIUM [Suspect]
     Indication: GASTROOESOPHAGEAL REFLUX DISEASE
     Route: 048
     Dates: start: 20120801
  8. NEXIUM [Suspect]
     Indication: CHEST PAIN
     Route: 048
     Dates: start: 20120801
  9. NEXIUM [Suspect]
     Indication: DYSPEPSIA
     Route: 048
     Dates: start: 20120801
  10. IBUPROFEN [Concomitant]
     Indication: PAIN
     Route: 048
     Dates: start: 2010
  11. IBUPROFEN [Concomitant]
     Indication: PAIN
     Dates: start: 20120802
  12. VITAMIN-D [Concomitant]
  13. CYCLOBENZAPRINE [Concomitant]
     Dates: start: 20120802
  14. ACIPHEX [Concomitant]
  15. ESCITELOPRAM [Concomitant]
     Dates: start: 20121030
  16. CARISOPRODOL [Concomitant]
     Dates: start: 20130417
  17. BONIVA [Concomitant]
  18. FOSAMAX [Concomitant]
  19. CYMBALTA [Concomitant]
  20. VITAMINS [Concomitant]
     Dosage: 500 V.D. 2 DAILY
  21. ALPRAZOLAM [Concomitant]
     Dates: start: 20120127
  22. PERCOCET [Concomitant]
     Indication: PAIN
     Dosage: 7.5/325 MG, PRN
     Route: 048
     Dates: start: 2010
  23. PERCOCET [Concomitant]
     Indication: PAIN

REACTIONS (19)
  - Back pain [Unknown]
  - Pain in extremity [Unknown]
  - Arthralgia [Unknown]
  - Spinal column injury [Unknown]
  - Osteoporosis [Unknown]
  - Multiple fractures [Unknown]
  - Joint injury [Unknown]
  - Road traffic accident [Unknown]
  - Injury [Unknown]
  - Bone disorder [Unknown]
  - Bone pain [Unknown]
  - Arthritis [Unknown]
  - Calcium deficiency [Unknown]
  - Scoliosis [Unknown]
  - Vitamin D deficiency [Unknown]
  - Anxiety [Unknown]
  - Panic attack [Unknown]
  - Bone loss [Unknown]
  - Fibromyalgia [Unknown]
